FAERS Safety Report 9373731 (Version 1)
Quarter: 2013Q2

REPORT INFORMATION
  Report Type: Report from Study
  Country: FR (occurrence: FR)
  Receive Date: 20130627
  Receipt Date: 20130627
  Transmission Date: 20140414
  Serious: Yes (Other)
  Sender: FDA-Public Use
  Company Number: FR-ROCHE-1241753

PATIENT
  Age: 47 Year
  Sex: Female

DRUGS (1)
  1. ZELBORAF [Suspect]
     Indication: NEOPLASM MALIGNANT
     Dosage: 4 DF IN THE MORNING AND 4DF IN THE EVENING
     Route: 048

REACTIONS (1)
  - Burning sensation mucosal [Unknown]
